FAERS Safety Report 14957577 (Version 1)
Quarter: 2018Q2

REPORT INFORMATION
  Report Type: Spontaneous
  Country: US (occurrence: US)
  Receive Date: 20180509
  Receipt Date: 20180509
  Transmission Date: 20180711
  Serious: Yes (Hospitalization, Disabling)
  Sender: FDA-Public Use
  Company Number: None

PATIENT
  Age: 30 Year
  Sex: Female
  Weight: 111.15 kg

DRUGS (6)
  1. LAMOTRIGINE. [Suspect]
     Active Substance: LAMOTRIGINE
     Indication: BIPOLAR DISORDER
     Dosage: ?          QUANTITY:1 TABLET(S);?
     Route: 048
     Dates: start: 20120831, end: 20150831
  2. IBUPROFEN. [Concomitant]
     Active Substance: IBUPROFEN
  3. CLYNDAMYCIN [Concomitant]
     Active Substance: CLINDAMYCIN
  4. REGLAN [Concomitant]
     Active Substance: METOCLOPRAMIDE HYDROCHLORIDE
  5. DUOAIR [Concomitant]
  6. NITE TIME SLEEPAID/PAIN RELIEVER [Concomitant]

REACTIONS (19)
  - Decreased appetite [None]
  - Heart rate increased [None]
  - Vomiting [None]
  - Chest pain [None]
  - Immune system disorder [None]
  - Gait disturbance [None]
  - Body temperature abnormal [None]
  - Diarrhoea [None]
  - Incontinence [None]
  - Rash [None]
  - Seizure [None]
  - Abdominal pain upper [None]
  - Nausea [None]
  - Heart rate decreased [None]
  - Blood pressure decreased [None]
  - Visual impairment [None]
  - Dyspnoea [None]
  - Cardiac murmur functional [None]
  - Condition aggravated [None]

NARRATIVE: CASE EVENT DATE: 20180509
